FAERS Safety Report 6995245-0 (Version None)
Quarter: 2010Q3

REPORT INFORMATION
  Report Type: 
  Country: None (occurrence: None)
  Receive Date: 20100915
  Receipt Date: 20100830
  Transmission Date: 20110219
  Serious: Yes (Death)
  Sender: FDA-Public Use
  Company Number: AUR-APL-2010-02155

PATIENT
  Age: 48 Year
  Sex: Female

DRUGS (11)
  1. GABAPENTIN [Suspect]
  2. LISINOPRIL [Suspect]
  3. FENTANYL-75 [Suspect]
     Dosage: TRANSDERMAL
     Route: 062
  4. HYDROCODONE [Suspect]
  5. DULOXETINE [Suspect]
  6. LORAZEPAM [Suspect]
  7. THEOPHYLLINE [Suspect]
  8. TEMAZEPAM [Suspect]
  9. MECLIZINE [Suspect]
  10. PANTOPRAZOLE [Suspect]
  11. SALSALATE [Suspect]

REACTIONS (9)
  - ACCIDENTAL DEATH [None]
  - DEVICE DISLOCATION [None]
  - DIZZINESS [None]
  - DRUG TOXICITY [None]
  - DYSARTHRIA [None]
  - INCORRECT DOSE ADMINISTERED [None]
  - PAIN IN EXTREMITY [None]
  - PRODUCT ADHESION ISSUE [None]
  - UNRESPONSIVE TO STIMULI [None]
